FAERS Safety Report 9196093 (Version 2)
Quarter: 2013Q2

REPORT INFORMATION
  Report Type: Spontaneous
  Country: ZA (occurrence: ZA)
  Receive Date: 20130328
  Receipt Date: 20130416
  Transmission Date: 20140414
  Serious: Yes (Other)
  Sender: FDA-Public Use
  Company Number: ZA-RANBAXY-2013RR-66548

PATIENT
  Age: 10 Year
  Sex: Female
  Weight: 30 kg

DRUGS (14)
  1. LINEZOLIDE [Suspect]
     Indication: PULMONARY TUBERCULOSIS
     Dosage: 300 MG, BID (20 MG/KG/DAY)
     Route: 048
  2. LAMIVUDINE [Suspect]
     Indication: HIV INFECTION
     Dosage: UNK
     Route: 065
  3. STAVUDINE [Suspect]
     Indication: HIV INFECTION
     Dosage: UNK
     Route: 065
  4. EFAVIRENZ [Suspect]
     Indication: HIV INFECTION
     Dosage: UNK
     Route: 065
  5. ISONIAZID [Suspect]
     Indication: PULMONARY TUBERCULOSIS
     Dosage: UNK
     Route: 065
  6. PYRAZINAMIDE [Suspect]
     Indication: PULMONARY TUBERCULOSIS
     Dosage: UNK
     Route: 065
  7. OFLOXACIN [Suspect]
     Indication: PULMONARY TUBERCULOSIS
     Dosage: UNK
     Route: 065
  8. AMOXICILLIN/CLAVULANIC ACID [Suspect]
     Indication: PULMONARY TUBERCULOSIS
     Dosage: UNK
     Route: 065
  9. CLARITHROMYCIN [Suspect]
     Indication: PULMONARY TUBERCULOSIS
     Dosage: UNK
     Route: 065
  10. TERIZIDONE [Suspect]
     Indication: PULMONARY TUBERCULOSIS
     Dosage: UNK
     Route: 065
  11. CAPREOMYCIN [Suspect]
     Indication: PULMONARY TUBERCULOSIS
     Dosage: UNK
     Route: 065
  12. AMINOSALICYLIC ACID [Suspect]
     Indication: PULMONARY TUBERCULOSIS
     Dosage: UNK
     Route: 065
  13. ABACAVIR [Suspect]
     Indication: HIV INFECTION
     Dosage: UNK
     Route: 065
  14. LINEZOLIDE [Concomitant]
     Indication: PULMONARY TUBERCULOSIS
     Dosage: 200 MG, BID
     Route: 048

REACTIONS (4)
  - Neuropathy peripheral [Recovered/Resolved]
  - Anaemia [Unknown]
  - Leukopenia [Unknown]
  - Transaminases increased [Unknown]
